FAERS Safety Report 23310177 (Version 1)
Quarter: 2023Q4

REPORT INFORMATION
  Report Type: Spontaneous
  Country: US (occurrence: None)
  Receive Date: 20231218
  Receipt Date: 20231218
  Transmission Date: 20240110
  Serious: Yes (Hospitalization)
  Sender: FDA-Public Use
  Company Number: None

PATIENT
  Sex: Female

DRUGS (3)
  1. CUVITRU [Suspect]
     Active Substance: HUMAN IMMUNOGLOBULIN G
     Indication: Premedication
     Dosage: OTHER FREQUENCY : EVERY 2 WEEKS;?
     Route: 058
     Dates: start: 202303
  2. CUVITRU [Suspect]
     Active Substance: HUMAN IMMUNOGLOBULIN G
     Indication: Hypogammaglobulinaemia
     Dosage: OTHER FREQUENCY : EVERY 2 WEEKS;?
     Route: 058
     Dates: start: 202303
  3. DIPHENHYDRAMINE (ALLERGY) [Concomitant]

REACTIONS (8)
  - Fall [None]
  - Lower limb fracture [None]
  - Wound [None]
  - Scab [None]
  - Blister [None]
  - Skin ulcer [None]
  - Skin discolouration [None]
  - Wound complication [None]

NARRATIVE: CASE EVENT DATE: 20231208
